FAERS Safety Report 18238836 (Version 13)
Quarter: 2021Q3

REPORT INFORMATION
  Report Type: Spontaneous
  Country: ES (occurrence: ES)
  Receive Date: 20200907
  Receipt Date: 20210923
  Transmission Date: 20211014
  Serious: Yes (Death, Hospitalization, Other)
  Sender: FDA-Public Use
  Company Number: NVSC2020ES230163

PATIENT
  Age: 48 Year
  Sex: Female

DRUGS (7)
  1. BEMIPARIN SODIUM [Concomitant]
     Active Substance: BEMIPARIN SODIUM
     Indication: CHRONIC MYELOID LEUKAEMIA
     Dosage: DAILYDOSIS :5000 UNIDAD INTERNACIONAL N?MERO DE TOMAS POR UNIDAD DE FRECUENCIA: 1
     Route: 065
  2. IMATINIB MESILATE [Interacting]
     Active Substance: IMATINIB MESYLATE
     Dosage: 300 MG, QD
     Route: 065
  3. INSULIN GLARGINE [Concomitant]
     Active Substance: INSULIN GLARGINE
     Indication: CHRONIC MYELOID LEUKAEMIA
     Dosage: 28 IU (INTERNATIONAL UNIT) DAILY
     Route: 065
  4. BISOPROLOL [Concomitant]
     Active Substance: BISOPROLOL
     Indication: CHRONIC MYELOID LEUKAEMIA
     Dosage: 2.5 MG, QD
     Route: 065
  5. REPAGLINIDE. [Concomitant]
     Active Substance: REPAGLINIDE
     Indication: CHRONIC MYELOID LEUKAEMIA
     Dosage: 1 DF, Q8H (EVERY 8 HOURS)
     Route: 065
  6. IMATINIB MESILATE [Suspect]
     Active Substance: IMATINIB MESYLATE
     Indication: CHRONIC MYELOID LEUKAEMIA RECURRENT
     Dosage: 400 MG/ 24H || DOSIS UNIDAD FRECUENCIA: 400 MG?MILIGRAMOS || DOSIS POR TOMA: 400 MG?MILIGRAMOS || N?
     Route: 048
     Dates: start: 20170413, end: 20170510
  7. GEFITINIB. [Suspect]
     Active Substance: GEFITINIB
     Indication: LUNG ADENOCARCINOMA STAGE IV
     Dosage: 250 MG, QD
     Route: 048
     Dates: start: 201610, end: 20170608

REACTIONS (7)
  - Malignant neoplasm progression [Unknown]
  - Pancreatitis acute [Fatal]
  - Gastrointestinal toxicity [Recovered/Resolved]
  - Asthenia [Recovered/Resolved]
  - Drug interaction [Unknown]
  - Neoplasm progression [Fatal]
  - Pancreatitis [Recovered/Resolved]

NARRATIVE: CASE EVENT DATE: 20170608
